FAERS Safety Report 4692026-8 (Version None)
Quarter: 2005Q2

REPORT INFORMATION
  Report Type: 
  Country: None (occurrence: None)
  Receive Date: 20050616
  Receipt Date: 20050616
  Transmission Date: 20051028
  Serious: Yes (Death, Life-Threatening, Hospitalization)
  Sender: FDA-Public Use
  Company Number: None

PATIENT
  Age: 58 Year
  Sex: Female
  Weight: 93.8946 kg

DRUGS (4)
  1. PACLITAXEL [Suspect]
     Indication: BREAST CANCER METASTATIC
     Dosage: 175 MG/M2    X 1    INTRAVENOU; 342 MG TOTAL
     Route: 042
     Dates: start: 20050527, end: 20050527
  2. PACLITAXEL [Suspect]
     Indication: METASTASES TO ABDOMINAL CAVITY
     Dosage: 175 MG/M2    X 1    INTRAVENOU; 342 MG TOTAL
     Route: 042
     Dates: start: 20050527, end: 20050527
  3. PACLITAXEL [Suspect]
     Indication: METASTASES TO LIVER
     Dosage: 175 MG/M2    X 1    INTRAVENOU; 342 MG TOTAL
     Route: 042
     Dates: start: 20050527, end: 20050527
  4. PACLITAXEL [Suspect]
     Indication: METASTASES TO PLEURA
     Dosage: 175 MG/M2    X 1    INTRAVENOU; 342 MG TOTAL
     Route: 042
     Dates: start: 20050527, end: 20050527

REACTIONS (8)
  - ABDOMINAL DISTENSION [None]
  - ASCITES [None]
  - INTESTINAL PERFORATION [None]
  - MULTI-ORGAN FAILURE [None]
  - NEOPLASM PROGRESSION [None]
  - NEUTROPENIA [None]
  - POST PROCEDURAL COMPLICATION [None]
  - SEPTIC SHOCK [None]
